FAERS Safety Report 6703704-0 (Version None)
Quarter: 2010Q2

REPORT INFORMATION
  Report Type: 
  Country: None (occurrence: None)
  Receive Date: 20100430
  Receipt Date: 20100309
  Transmission Date: 20101027
  Serious: No
  Sender: FDA-Public Use
  Company Number: A0849167A

PATIENT
  Age: 7 Year
  Sex: Female

DRUGS (4)
  1. FLOVENT [Suspect]
     Indication: COUGH
     Dosage: 1PUFF TWICE PER DAY
     Route: 055
     Dates: start: 20100225, end: 20100305
  2. VENTOLIN [Suspect]
     Indication: COUGH
     Dosage: 2PUFF VARIABLE DOSE
     Route: 055
     Dates: start: 20100130, end: 20100204
  3. NASONEX [Concomitant]
  4. ZYRTEC [Concomitant]

REACTIONS (2)
  - DRUG INEFFECTIVE [None]
  - PEAK EXPIRATORY FLOW RATE DECREASED [None]
